FAERS Safety Report 17565442 (Version 1)
Quarter: 2020Q1

REPORT INFORMATION
  Report Type: Spontaneous
  Country: US (occurrence: US)
  Receive Date: 20200313
  Receipt Date: 20200313
  Transmission Date: 20200409
  Serious: Yes (Death, Hospitalization)
  Sender: FDA-Public Use
  Company Number: None

PATIENT
  Age: 79 Year
  Sex: Female
  Weight: 65.5 kg

DRUGS (1)
  1. PALBOCICLIB (PD-0332991) [Suspect]
     Active Substance: PALBOCICLIB
     Dates: start: 20190505

REACTIONS (7)
  - Failure to thrive [None]
  - Crepitations [None]
  - Pneumonia [None]
  - Breath sounds abnormal [None]
  - Dyspnoea [None]
  - Pleural infection [None]
  - Asthenia [None]

NARRATIVE: CASE EVENT DATE: 20190506
